FAERS Safety Report 5940727-3 (Version None)
Quarter: 2008Q4

REPORT INFORMATION
  Report Type: 
  Country: None (occurrence: None)
  Receive Date: 20081030
  Receipt Date: 20081023
  Transmission Date: 20090506
  Serious: Yes (Other)
  Sender: FDA-Public Use
  Company Number: THQ2008A02133

PATIENT
  Age: 28 Year
  Sex: Male

DRUGS (3)
  1. ACTOSMET (PIOGLITAZONE HYDROCHLORIDE, METFORMIN HYDROCHLORIDE) [Suspect]
     Dosage: 15/850 MG PER ORAL
     Route: 048
     Dates: start: 20080923
  2. ACTOS (PIOGLITAOZNE HYDROCHLORIDE) [Concomitant]
  3. GLYBURIDE [Concomitant]

REACTIONS (2)
  - ARRHYTHMIA [None]
  - PALPITATIONS [None]
